FAERS Safety Report 9587708 (Version 1)
Quarter: 2013Q4

REPORT INFORMATION
  Report Type: Spontaneous
  Country: US (occurrence: US)
  Receive Date: 20131003
  Receipt Date: 20131003
  Transmission Date: 20140711
  Serious: No
  Sender: FDA-Public Use
  Company Number: US-COVIDIEN/TYCO HEALTHCARE/MALLINCKRODT-T201203676

PATIENT
  Age: 53 Year
  Sex: Male

DRUGS (4)
  1. EXALGO EXTENDED RELEASE [Suspect]
     Indication: BACK PAIN
     Dosage: 8 MG, QD
     Route: 048
     Dates: start: 20121003, end: 20121007
  2. XANAX [Concomitant]
     Indication: DEPRESSION
     Dosage: Q8 HOURS
     Route: 048
  3. OXYCONTIN [Concomitant]
     Indication: BACK PAIN
     Dosage: UNK
     Dates: end: 20121003
  4. PERCOCET                           /00446701/ [Concomitant]
     Indication: BACK PAIN
     Dosage: UNK
     Dates: end: 20121003

REACTIONS (2)
  - Irritability [Recovered/Resolved]
  - Feeling of body temperature change [Recovered/Resolved]
